FAERS Safety Report 7215370-9 (Version None)
Quarter: 2011Q1

REPORT INFORMATION
  Report Type: 
  Country: None (occurrence: None)
  Receive Date: 20110107
  Receipt Date: 20101230
  Transmission Date: 20110831
  Serious: Yes (Hospitalization, Other)
  Sender: FDA-Public Use
  Company Number: US-BAYER-US-2006-000910

PATIENT
  Sex: Female

DRUGS (3)
  1. BETASERON [Suspect]
     Dosage: 8 MIU, EVERY 2D
     Route: 058
     Dates: start: 20050418, end: 20101025
  2. COPAXONE [Concomitant]
     Dosage: UNK
     Dates: start: 20101101, end: 20101201
  3. BETASERON [Suspect]
     Indication: MULTIPLE SCLEROSIS
     Dosage: UNK
     Dates: start: 20001023, end: 20041119

REACTIONS (13)
  - NON-CARDIAC CHEST PAIN [None]
  - FALL [None]
  - MULTIPLE SCLEROSIS RELAPSE [None]
  - SPEECH DISORDER [None]
  - INTESTINAL OBSTRUCTION [None]
  - DYSPNOEA [None]
  - AMNESIA [None]
  - DEFAECATION URGENCY [None]
  - GAIT DISTURBANCE [None]
  - MEMORY IMPAIRMENT [None]
  - LOSS OF CONSCIOUSNESS [None]
  - MOBILITY DECREASED [None]
  - MIGRAINE [None]
